FAERS Safety Report 11584123 (Version 1)
Quarter: 2015Q4

REPORT INFORMATION
  Report Type: Spontaneous
  Country: US (occurrence: US)
  Receive Date: 20151001
  Receipt Date: 20151001
  Transmission Date: 20160304
  Serious: No
  Sender: FDA-Public Use
  Company Number: US-ROCHE-659406

PATIENT
  Sex: Male

DRUGS (2)
  1. COPEGUS [Suspect]
     Active Substance: RIBAVIRIN
     Indication: HEPATITIS C
     Dosage: DIVIDED DOSES
     Route: 048
  2. PEGASYS [Suspect]
     Active Substance: PEGINTERFERON ALFA-2A
     Indication: HEPATITIS C
     Dosage: FORM: PRE FILLED SYRINGE
     Route: 065

REACTIONS (8)
  - Skin burning sensation [Unknown]
  - Feeling abnormal [Unknown]
  - Pyrexia [Not Recovered/Not Resolved]
  - Abdominal pain upper [Recovering/Resolving]
  - Insomnia [Unknown]
  - Anxiety [Not Recovered/Not Resolved]
  - Influenza like illness [Unknown]
  - Hypokinesia [Unknown]
